FAERS Safety Report 9949575 (Version 2)
Quarter: 2014Q1

REPORT INFORMATION
  Report Type: Spontaneous
  Country: US (occurrence: US)
  Receive Date: 20140304
  Receipt Date: 20140320
  Transmission Date: 20141002
  Serious: Yes (Other)
  Sender: FDA-Public Use
  Company Number: US-009507513-1402USA012223

PATIENT
  Age: 13 Year
  Sex: Male
  Weight: 43.3 kg

DRUGS (3)
  1. DULERA [Suspect]
     Indication: ASTHMA
     Dosage: 2 PUFFS TWICE A DAY
     Route: 055
     Dates: start: 20120505
  2. DULERA [Suspect]
     Dosage: 2 PUFFS TWICE A DAY
     Route: 055
  3. XOPENEX [Concomitant]

REACTIONS (5)
  - Asthma [Recovered/Resolved]
  - Drug dose omission [Unknown]
  - Drug dose omission [Unknown]
  - Product quality issue [Unknown]
  - Product quality issue [Unknown]
